FAERS Safety Report 6142392-1 (Version None)
Quarter: 2009Q2

REPORT INFORMATION
  Report Type: 
  Country: None (occurrence: None)
  Receive Date: 20090402
  Receipt Date: 20090402
  Transmission Date: 20091009
  Serious: Yes (Life-Threatening, Hospitalization)
  Sender: FDA-Public Use
  Company Number: None

PATIENT
  Sex: Male
  Weight: 86.1834 kg

DRUGS (1)
  1. HEPARIN [Suspect]
     Indication: CARDIAC OPERATION
     Dates: start: 20081219

REACTIONS (6)
  - LOCALISED INFECTION [None]
  - PLATELET COUNT DECREASED [None]
  - PRODUCT QUALITY ISSUE [None]
  - PULMONARY EMBOLISM [None]
  - PULMONARY OEDEMA [None]
  - SKIN GRAFT [None]
